FAERS Safety Report 14871365 (Version 1)
Quarter: 2018Q2

REPORT INFORMATION
  Report Type: Spontaneous
  Country: GB (occurrence: US)
  Receive Date: 20180509
  Receipt Date: 20180509
  Transmission Date: 20180711
  Serious: Yes (Death, Other)
  Sender: FDA-Public Use
  Company Number: GB-MYLANLABS-2018M1030118

PATIENT
  Age: 30 Day
  Sex: Female

DRUGS (2)
  1. METHADONE [Suspect]
     Active Substance: METHADONE HYDROCHLORIDE
     Dosage: MOTHER WAS TAKING METHADONE 75MG/DAY DURING PREGNANCY
     Route: 064
  2. METHADONE [Suspect]
     Active Substance: METHADONE HYDROCHLORIDE
     Indication: PRODUCT USED FOR UNKNOWN INDICATION
     Dosage: INFANT WAS BREAST FED AND THE MOTHER WAS TAKING METHADONE 75MG/DAY
     Route: 063

REACTIONS (3)
  - Foetal exposure during pregnancy [Unknown]
  - Cardiac arrest [Fatal]
  - Exposure via breast milk [Unknown]
